FAERS Safety Report 17626772 (Version 2)
Quarter: 2020Q2

REPORT INFORMATION
  Report Type: Spontaneous
  Country: DE (occurrence: DE)
  Receive Date: 20200405
  Receipt Date: 20200407
  Transmission Date: 20200713
  Serious: Yes (Other)
  Sender: FDA-Public Use
  Company Number: NVSC2020DE090459

PATIENT
  Sex: Male
  Weight: 127 kg

DRUGS (11)
  1. ROXI 300 - 1 A PHARMA (ROXITHROMYCIN) [Suspect]
     Active Substance: ROXITHROMYCIN
     Indication: PRODUCT USED FOR UNKNOWN INDICATION
     Dosage: 300 OT, QD
     Route: 065
     Dates: start: 20200320, end: 20200326
  2. ASS AL [Suspect]
     Active Substance: ASPIRIN
     Indication: PRODUCT USED FOR UNKNOWN INDICATION
     Dosage: 100, QD
     Route: 065
     Dates: start: 20170301
  3. INSULINE ASPARTE [Suspect]
     Active Substance: INSULIN ASPART
     Indication: PRODUCT USED FOR UNKNOWN INDICATION
     Dosage: 100 U/ML, UNKNOWN
     Route: 065
     Dates: start: 20160328
  4. EPLERENONE 25 MG FILM-COATED TABLETS [Suspect]
     Active Substance: EPLERENONE
     Indication: PRODUCT USED FOR UNKNOWN INDICATION
     Dosage: 25 MG, QD
     Route: 065
     Dates: start: 20200113
  5. VALSARTAN - 1 A PHARMA PLUS 160 MG/12,5 MG FILMTABLETTEN [Suspect]
     Active Substance: HYDROCHLOROTHIAZIDE\VALSARTAN
     Indication: PRODUCT USED FOR UNKNOWN INDICATION
     Dosage: 1 DF, QD
     Route: 065
     Dates: start: 20100330
  6. METFORMIN HYDROCHLORIDE. [Suspect]
     Active Substance: METFORMIN HYDROCHLORIDE
     Indication: PRODUCT USED FOR UNKNOWN INDICATION
     Dosage: 1000 MG, BID
     Route: 065
     Dates: start: 20100330
  7. TOUJEO [Suspect]
     Active Substance: INSULIN GLARGINE
     Indication: PRODUCT USED FOR UNKNOWN INDICATION
     Dosage: 300 U/ML (28 DAILY)
     Route: 065
     Dates: start: 20190606
  8. ROSUVASTATIN RATIOPHARM [Suspect]
     Active Substance: ROSUVASTATIN
     Indication: PRODUCT USED FOR UNKNOWN INDICATION
     Dosage: 10 MG, QD
     Route: 065
     Dates: start: 20190328
  9. PANTOPRAZOL [Suspect]
     Active Substance: PANTOPRAZOLE SODIUM
     Indication: PRODUCT USED FOR UNKNOWN INDICATION
     Dosage: 20 MG, QD
     Route: 065
     Dates: start: 20170328
  10. AMLODIPIN (BESILAT) DEXCEL [Suspect]
     Active Substance: AMLODIPINE BESYLATE
     Indication: PRODUCT USED FOR UNKNOWN INDICATION
     Dosage: 5 MG, BID
     Route: 065
     Dates: start: 20170328
  11. METOPROLOL 50 - 1 A PHARMA [Suspect]
     Active Substance: METOPROLOL
     Indication: PRODUCT USED FOR UNKNOWN INDICATION
     Dosage: 50 OT, BID
     Route: 065
     Dates: start: 20170328

REACTIONS (9)
  - Diarrhoea [Unknown]
  - Arrhythmia [Unknown]
  - Nausea [Unknown]
  - Influenza [Unknown]
  - Abdominal pain upper [Unknown]
  - Cardiovascular disorder [Unknown]
  - Arthralgia [Unknown]
  - Hypotonia [Unknown]
  - Palpitations [Unknown]

NARRATIVE: CASE EVENT DATE: 20200321
